FAERS Safety Report 9778438 (Version 1)
Quarter: 2013Q4

REPORT INFORMATION
  Report Type: Report from Study
  Country: GB (occurrence: GB)
  Receive Date: 20131223
  Receipt Date: 20131223
  Transmission Date: 20140711
  Serious: Yes (Other)
  Sender: FDA-Public Use
  Company Number: GB-JNJFOC-20131210010

PATIENT
  Sex: 0

DRUGS (3)
  1. INFLIXIMAB, RECOMBINANT [Suspect]
     Indication: RHEUMATOID ARTHRITIS
     Dosage: MAXIMUM DOSE OF 1000 MG AND STANDARD REGIME OF WEEK 0,2,6,14,22
     Route: 042
  2. METHOTREXATE [Suspect]
     Indication: RHEUMATOID ARTHRITIS
     Dosage: WEEKLY INCREASING TO 20 MG OR MAXIMUM TOLERATED DOSE BY WEEK 6
     Route: 065
  3. FOLIC ACID [Concomitant]
     Dosage: 5 MG DAILY EXCEPT THE DAY OF METHOTREXATE
     Route: 065

REACTIONS (2)
  - Pulmonary tuberculosis [Unknown]
  - Pleural effusion [Unknown]
